FAERS Safety Report 16203568 (Version 1)
Quarter: 2019Q2

REPORT INFORMATION
  Report Type: Spontaneous
  Country: GB (occurrence: GB)
  Receive Date: 20190416
  Receipt Date: 20190416
  Transmission Date: 20190711
  Serious: Yes (Death, Other)
  Sender: FDA-Public Use
  Company Number: GB-BAUSCH-BL-2019-011113

PATIENT
  Age: 22 Year
  Sex: Female

DRUGS (1)
  1. MINOCYCLINE [Suspect]
     Active Substance: MINOCYCLINE\MINOCYCLINE HYDROCHLORIDE
     Indication: ACNE
     Dosage: (5/12)
     Route: 065

REACTIONS (3)
  - Pancytopenia [Fatal]
  - Autoimmune hepatitis [Unknown]
  - Drug-induced liver injury [Unknown]
